FAERS Safety Report 11344236 (Version 2)
Quarter: 2015Q3

REPORT INFORMATION
  Report Type: Spontaneous
  Country: IL (occurrence: IL)
  Receive Date: 20150806
  Receipt Date: 20150818
  Transmission Date: 20151125
  Serious: Yes (Hospitalization)
  Sender: FDA-Public Use
  Company Number: IL-JNJFOC-20150801008

PATIENT
  Age: 77 Year
  Sex: Female

DRUGS (10)
  1. DISOTHIAZIDE [Concomitant]
     Route: 065
  2. EZETROL [Concomitant]
     Active Substance: EZETIMIBE
     Route: 065
  3. ROSUVASTATIN [Concomitant]
     Active Substance: ROSUVASTATIN
     Route: 065
  4. XARELTO [Suspect]
     Active Substance: RIVAROXABAN
     Indication: CEREBROVASCULAR ACCIDENT PROPHYLAXIS
     Route: 065
     Dates: start: 201410, end: 201506
  5. CARDILOC [Concomitant]
     Active Substance: BISOPROLOL FUMARATE
     Route: 065
  6. PROPAFENONE HYDROCHLORIDE. [Concomitant]
     Active Substance: PROPAFENONE HYDROCHLORIDE
     Route: 065
  7. XARELTO [Suspect]
     Active Substance: RIVAROXABAN
     Indication: ATRIAL FIBRILLATION
     Route: 065
     Dates: start: 201410, end: 201506
  8. CALCIUM W/ D [Concomitant]
     Dosage: 600/400, QOD
     Route: 065
  9. ENALADEX [Concomitant]
     Active Substance: ENALAPRIL MALEATE
     Route: 065
  10. STUNARONE [Concomitant]
     Route: 065

REACTIONS (1)
  - Ischaemic stroke [Recovered/Resolved]

NARRATIVE: CASE EVENT DATE: 201506
